FAERS Safety Report 5192198-5 (Version None)
Quarter: 2006Q4

REPORT INFORMATION
  Report Type: 
  Country: None (occurrence: None)
  Receive Date: 20061220
  Receipt Date: 20061211
  Transmission Date: 20070319
  Serious: Yes (Hospitalization)
  Sender: FDA-Public Use
  Company Number: HQWYE890112DEC06

PATIENT
  Age: 65 Year
  Sex: Male

DRUGS (11)
  1. RAPAMUNE [Suspect]
     Indication: PROPHYLAXIS AGAINST TRANSPLANT REJECTION
     Dosage: 2 MG 1X PER 1 DAY; ORAL; 4 MG 1X PER 1 DAY; ORAL
     Route: 048
     Dates: start: 20050514, end: 20061120
  2. RAPAMUNE [Suspect]
     Indication: PROPHYLAXIS AGAINST TRANSPLANT REJECTION
     Dosage: 2 MG 1X PER 1 DAY; ORAL; 4 MG 1X PER 1 DAY; ORAL
     Route: 048
     Dates: start: 20061121
  3. ALLOPURINOL SODIUM [Concomitant]
  4. LEVOTHYROXINE SODIUM [Concomitant]
  5. FISH (FISH OIL) [Concomitant]
  6. FISH (FISH OIL) [Concomitant]
  7. IRBESARTAN [Concomitant]
  8. FUROSEMIDE [Concomitant]
  9. EPOGEN [Concomitant]
  10. INSULIN [Concomitant]
  11. RIFAXIMIN [Concomitant]

REACTIONS (2)
  - ASTHENIA [None]
  - PNEUMONITIS [None]
